FAERS Safety Report 10053672 (Version 2)
Quarter: 2014Q2

REPORT INFORMATION
  Report Type: Spontaneous
  Country: US (occurrence: US)
  Receive Date: 20140402
  Receipt Date: 20140402
  Transmission Date: 20141212
  Serious: No
  Sender: FDA-Public Use
  Company Number: US-BAXTER-2014BAX014755

PATIENT
  Age: 51 Year
  Sex: Female
  Weight: 66.5 kg

DRUGS (1)
  1. 0.9% SODIUM CHLORIDE INJECTION [Suspect]
     Indication: HAEMODIALYSIS
     Route: 042
     Dates: start: 201403

REACTIONS (3)
  - Nasopharyngitis [Recovering/Resolving]
  - Tachycardia [Recovered/Resolved]
  - Influenza like illness [Recovering/Resolving]
